FAERS Safety Report 5064766-2 (Version None)
Quarter: 2006Q3

REPORT INFORMATION
  Report Type: 
  Country: None (occurrence: None)
  Receive Date: 20060706
  Receipt Date: 20060531
  Transmission Date: 20061208
  Serious: No
  Sender: FDA-Public Use
  Company Number: 200613679BWH

PATIENT
  Age: 83 Year
  Sex: Male

DRUGS (13)
  1. LEVITRA [Suspect]
     Indication: ERECTILE DYSFUNCTION
     Dosage: 20 MG, ONCE, ORAL
     Route: 048
     Dates: start: 20060530
  2. LEVITRA [Suspect]
     Indication: ERECTILE DYSFUNCTION
     Dosage: 20 MG, ONCE, ORAL
     Route: 048
     Dates: start: 20060531
  3. LIPITOR [Concomitant]
  4. LASIX [Concomitant]
  5. COREG [Concomitant]
  6. DIOVAN [Concomitant]
  7. SULAR [Concomitant]
  8. LEXAPRO [Concomitant]
  9. PREVACID [Concomitant]
  10. MULTI-VITAMIN [Concomitant]
  11. ASPIRIN [Concomitant]
  12. CARDURA [Concomitant]
  13. CITRUCEL [Concomitant]

REACTIONS (1)
  - ERECTILE DYSFUNCTION [None]
